FAERS Safety Report 5568073-0 (Version None)
Quarter: 2007Q4

REPORT INFORMATION
  Report Type: 
  Country: None (occurrence: None)
  Receive Date: 20071220
  Receipt Date: 20071213
  Transmission Date: 20080405
  Serious: Yes (Hospitalization)
  Sender: FDA-Public Use
  Company Number: JP-NOVOPROD-266193

PATIENT

DRUGS (3)
  1. NORDITROPIN NORDIFLEX [Suspect]
     Indication: GROWTH HORMONE DEFICIENCY
     Dosage: 2.4 MG, QW
     Route: 058
     Dates: start: 20060112, end: 20070726
  2. PRANLUKAST [Concomitant]
     Indication: ASTHMA
     Dosage: .8 G, UNK
     Route: 048
     Dates: start: 20050430
  3. THEOPHYLLINE [Concomitant]
     Indication: ASTHMA
     Dosage: .7 G, UNK
     Route: 048
     Dates: start: 20050430

REACTIONS (1)
  - MALIGNANT MELANOMA [None]
